FAERS Safety Report 17913104 (Version 3)
Quarter: 2020Q4

REPORT INFORMATION
  Report Type: Report from Study
  Country: None (occurrence: DE)
  Receive Date: 20200618
  Receipt Date: 20201023
  Transmission Date: 20210113
  Serious: Yes (Hospitalization, Other)
  Sender: FDA-Public Use
  Company Number: DE-ABBVIE-20P-062-3439295-00

PATIENT
  Age: 57 Year
  Sex: Male
  Weight: 93 kg

DRUGS (10)
  1. UPADACITINIB [Suspect]
     Active Substance: UPADACITINIB
     Indication: DERMATITIS ATOPIC
     Route: 048
     Dates: start: 20191005
  2. BETAMETHASONE DIPROPIONATE. [Suspect]
     Active Substance: BETAMETHASONE DIPROPIONATE
     Indication: DERMATITIS ATOPIC
     Dosage: 1 APPLICATION
     Route: 061
     Dates: start: 20190723, end: 20190808
  3. FENISTIL TROPFEN [Concomitant]
     Indication: DERMATITIS ATOPIC
     Route: 048
     Dates: start: 20181101
  4. ATORVASTATIN [Concomitant]
     Active Substance: ATORVASTATIN
     Indication: HYPERLIPIDAEMIA
     Route: 048
     Dates: start: 20150601
  5. MOMETASONE FUROATE. [Suspect]
     Active Substance: MOMETASONE FUROATE
     Indication: DERMATITIS ATOPIC
     Dosage: 1 APPLICATION
     Route: 061
     Dates: start: 20190709, end: 20191105
  6. PLACEBO [Suspect]
     Active Substance: UNSPECIFIED INGREDIENT
     Indication: DERMATITIS ATOPIC
     Route: 048
     Dates: start: 20190626, end: 20191004
  7. VALSACOR [Concomitant]
     Active Substance: VALSARTAN
     Indication: HYPERTENSION
     Dosage: 320-25 MG
     Route: 048
     Dates: start: 20140401
  8. ALFASON BASIS CRESA [Concomitant]
     Indication: DRY SKIN PROPHYLAXIS
     Dosage: 1 APPLICATION
     Route: 061
     Dates: start: 20190201
  9. EXCIPIAL U LIPOLOTIO [Concomitant]
     Indication: DRY SKIN PROPHYLAXIS
     Dosage: 1 APPLICATION
     Route: 061
     Dates: start: 20190201
  10. PREDNICARBATE. [Suspect]
     Active Substance: PREDNICARBATE
     Indication: DERMATITIS ATOPIC
     Dosage: 1 APPLICATION
     Route: 061
     Dates: start: 20190626, end: 20191112

REACTIONS (2)
  - Device related infection [Recovered/Resolved]
  - Device related infection [Recovered/Resolved]

NARRATIVE: CASE EVENT DATE: 20200517
